FAERS Safety Report 8208823-8 (Version None)
Quarter: 2012Q1

REPORT INFORMATION
  Report Type: 
  Country: None (occurrence: None)
  Receive Date: 20120314
  Receipt Date: 20120302
  Transmission Date: 20120608
  Serious: Yes (Disabling, Other)
  Sender: FDA-Public Use
  Company Number: DE-PFIZER INC-2011276027

PATIENT
  Age: 51 Year
  Sex: Female

DRUGS (3)
  1. METOPROLOL [Concomitant]
     Indication: VENTRICULAR TACHYCARDIA
     Dosage: 25 MG, 2X/DAY
     Route: 048
     Dates: start: 20091201
  2. AMIODARONE HCL [Suspect]
     Indication: VENTRICULAR TACHYCARDIA
     Dosage: 200 MG, 1X/DAY
     Route: 048
     Dates: start: 20091201, end: 20110301
  3. TORASEMIDE [Concomitant]
     Indication: VENTRICULAR TACHYCARDIA
     Dosage: 5 MG, 1X/DAY
     Route: 048
     Dates: start: 20091201

REACTIONS (6)
  - MYOPATHY TOXIC [None]
  - BLOOD CREATINE PHOSPHOKINASE INCREASED [None]
  - MUSCLE TIGHTNESS [None]
  - MUSCULOSKELETAL DISCOMFORT [None]
  - TOXIC NEUROPATHY [None]
  - JOINT SWELLING [None]
